FAERS Safety Report 5161253-8 (Version None)
Quarter: 2006Q4

REPORT INFORMATION
  Report Type: 
  Country: None (occurrence: None)
  Receive Date: 20061130
  Receipt Date: 20060915
  Transmission Date: 20070319
  Serious: Yes (Other)
  Sender: FDA-Public Use
  Company Number: US-BRISTOL-MYERS SQUIBB COMPANY-13511068

PATIENT
  Age: 6 Decade
  Sex: Male
  Weight: 155 kg

DRUGS (17)
  1. ERBITUX [Suspect]
     Indication: COLORECTAL CANCER METASTATIC
     Route: 042
     Dates: start: 20060425
  2. MAGNESIUM [Concomitant]
     Indication: PREMEDICATION
     Route: 042
  3. BENADRYL [Concomitant]
     Indication: PREMEDICATION
     Route: 042
  4. ZOFRAN [Concomitant]
     Indication: PREMEDICATION
     Route: 042
  5. TYLENOL [Concomitant]
     Indication: PREMEDICATION
     Route: 048
  6. LORAZEPAM [Concomitant]
     Route: 042
  7. NORFLEX [Concomitant]
     Route: 042
  8. NAPROXEN [Concomitant]
     Route: 042
  9. MULTI-VITAMIN [Concomitant]
  10. GLYBURIDE [Concomitant]
  11. IRON [Concomitant]
  12. PERCOCET [Concomitant]
  13. MAG-OX [Concomitant]
  14. AMBIEN [Concomitant]
  15. PEPCID [Concomitant]
  16. NEXIUM [Concomitant]
  17. GABAPENTIN [Concomitant]

REACTIONS (1)
  - HYPOMAGNESAEMIA [None]
